FAERS Safety Report 9915274 (Version 1)
Quarter: 2014Q1

REPORT INFORMATION
  Report Type: Spontaneous
  Country: FR (occurrence: FR)
  Receive Date: 20140221
  Receipt Date: 20140221
  Transmission Date: 20141002
  Serious: Yes (Life-Threatening, Hospitalization)
  Sender: FDA-Public Use
  Company Number: FR-ASTRAZENECA-2014SE11501

PATIENT
  Age: 8046 Day
  Sex: Female

DRUGS (5)
  1. CRESTOR [Suspect]
     Route: 048
     Dates: start: 20140123, end: 20140123
  2. CRESTOR [Suspect]
     Dosage: 90 TABLET OF 5 MG
     Route: 048
     Dates: start: 20140123, end: 20140123
  3. AMLOR [Suspect]
     Route: 048
     Dates: start: 20140123, end: 20140123
  4. AMLOR [Suspect]
     Dosage: 45 TABLET OF 5 MG
     Route: 048
     Dates: start: 20140123, end: 20140123
  5. EUCREAS [Suspect]
     Dosage: 10 DF, ONCE/SINGLE ADMINISTRATION
     Route: 048
     Dates: start: 20140123, end: 20140123

REACTIONS (5)
  - Overdose [Unknown]
  - Hypotension [Recovered/Resolved with Sequelae]
  - Renal failure acute [Recovered/Resolved]
  - Lactic acidosis [Recovered/Resolved]
  - Intentional drug misuse [Unknown]
